FAERS Safety Report 5016559-X (Version None)
Quarter: 2006Q2

REPORT INFORMATION
  Report Type: 
  Country: None (occurrence: None)
  Receive Date: 20060531
  Receipt Date: 20060531
  Transmission Date: 20061013
  Serious: Yes (Hospitalization)
  Sender: FDA-Public Use
  Company Number: None

PATIENT
  Age: 47 Year
  Sex: Male
  Weight: 74.3899 kg

DRUGS (6)
  1. ERLOTINIB 100MG  DAILY [Suspect]
     Dosage: 100MG DAILY
  2. AVASTIN [Suspect]
     Dosage: 10MG/KG IV Q 2 WEEKS
  3. CISPLATIN [Suspect]
     Dosage: 33 MG/M2 MON-WED WK1
  4. ZOFRAN [Concomitant]
  5. OXYCONTIN [Concomitant]
  6. OXYCODONE HCL [Concomitant]

REACTIONS (3)
  - HYPOVOLAEMIA [None]
  - PNEUMONIA ASPIRATION [None]
  - PYREXIA [None]
